FAERS Safety Report 26129930 (Version 1)
Quarter: 2025Q4

REPORT INFORMATION
  Report Type: Spontaneous
  Country: US (occurrence: US)
  Receive Date: 20251208
  Receipt Date: 20251208
  Transmission Date: 20260118
  Serious: No
  Sender: LEO PHARM
  Company Number: US-LEO Pharma-384693

PATIENT
  Age: 27 Year
  Sex: Female

DRUGS (2)
  1. ADBRY [Suspect]
     Active Substance: TRALOKINUMAB-LDRM
     Indication: Skin abrasion
     Dosage: TREATMENT ONGOING
     Route: 058
     Dates: start: 202502
  2. ADBRY [Suspect]
     Active Substance: TRALOKINUMAB-LDRM
     Indication: Dermatitis atopic
     Dosage: TREATMENT ONGOING
     Route: 058
     Dates: start: 202502

REACTIONS (2)
  - Eczema [Unknown]
  - Injection site pruritus [Unknown]
